FAERS Safety Report 6136090-8 (Version None)
Quarter: 2009Q1

REPORT INFORMATION
  Report Type: 
  Country: None (occurrence: None)
  Receive Date: 20090330
  Receipt Date: 20090323
  Transmission Date: 20090719
  Serious: Yes (Congenital Anomaly)
  Sender: FDA-Public Use
  Company Number: FR-ASTRAZENECA-2009CG00567

PATIENT
  Age: 0 Day
  Sex: Female
  Weight: 2.8 kg

DRUGS (8)
  1. NEXIUM [Suspect]
     Route: 064
     Dates: end: 20070215
  2. GLUCOPHAGE [Suspect]
     Route: 064
     Dates: end: 20070215
  3. ACTOS [Suspect]
     Route: 064
     Dates: end: 20070215
  4. TRIATEC [Suspect]
     Route: 064
     Dates: end: 20070215
  5. DICETEL [Suspect]
     Route: 064
     Dates: end: 20070215
  6. NOVOLOG MIX 70/30 [Concomitant]
     Indication: INSULIN-REQUIRING TYPE 2 DIABETES MELLITUS
     Route: 064
     Dates: start: 20070201
  7. INSULATARD [Concomitant]
     Indication: INSULIN-REQUIRING TYPE 2 DIABETES MELLITUS
     Route: 064
     Dates: start: 20070201
  8. NOVORAPID [Concomitant]
     Indication: INSULIN-REQUIRING TYPE 2 DIABETES MELLITUS
     Route: 064
     Dates: start: 20070201

REACTIONS (1)
  - ANOTIA [None]
